FAERS Safety Report 25307397 (Version 1)
Quarter: 2025Q2

REPORT INFORMATION
  Report Type: Spontaneous
  Country: CN (occurrence: CN)
  Receive Date: 20250513
  Receipt Date: 20250513
  Transmission Date: 20250716
  Serious: Yes (Other)
  Sender: ROCHE
  Company Number: CN-ROCHE-10000277856

PATIENT
  Age: 83 Year
  Sex: Female
  Weight: 60.0 kg

DRUGS (2)
  1. ALTEPLASE [Suspect]
     Active Substance: ALTEPLASE
     Indication: Cerebral infarction
     Route: 042
     Dates: start: 20250425, end: 20250425
  2. ALTEPLASE [Suspect]
     Active Substance: ALTEPLASE
     Route: 042
     Dates: start: 20250425, end: 20250425

REACTIONS (5)
  - Cerebral haemorrhage [Unknown]
  - Dyspnoea [Unknown]
  - Vomiting [Unknown]
  - Haemoptysis [Unknown]
  - Off label use [Unknown]

NARRATIVE: CASE EVENT DATE: 20250425
